FAERS Safety Report 19863848 (Version 1)
Quarter: 2021Q3

REPORT INFORMATION
  Report Type: Spontaneous
  Country: NL (occurrence: NL)
  Receive Date: 20210921
  Receipt Date: 20210921
  Transmission Date: 20211014
  Serious: Yes (Hospitalization)
  Sender: FDA-Public Use
  Company Number: NL-MYLANLABS-2021M1063934

PATIENT
  Age: 66 Year
  Sex: Female
  Weight: 63 kg

DRUGS (7)
  1. AMLODIPINE [Concomitant]
     Active Substance: AMLODIPINE BESYLATE
     Dosage: UNK, TABLET, 5 MG (MILLIGRAM)
     Route: 065
  2. CLOPIDOGREL [Concomitant]
     Active Substance: CLOPIDOGREL BISULFATE
     Dosage: UNK, TABLET 75 MG
     Route: 065
  3. SIMVASTATINE [Concomitant]
     Active Substance: SIMVASTATIN
     Dosage: UNK, FILMOMHULDE TABLET, 40 MG (MILLIGRAM)
     Route: 065
  4. HYDROCHLOROTHIAZIDE. [Suspect]
     Active Substance: HYDROCHLOROTHIAZIDE
     Indication: HYPERTENSION
     Dosage: 12.5 MILLIGRAM, QD, 1 X PER DAY, ONE PIECE
     Route: 065
     Dates: start: 2015, end: 20210324
  5. COLECALCIFEROL [Concomitant]
     Active Substance: CHOLECALCIFEROL
     Dosage: UNK, TABLET 20
     Route: 065
  6. ALENDRONINEZUUR [Concomitant]
     Active Substance: ALENDRONIC ACID
     Dosage: UNK, TABLET, 70 MG (MILLIGRAM)
     Route: 065
  7. CICLESONIDE [Concomitant]
     Active Substance: CICLESONIDE
     Dosage: UNK, AEROSOL, 80 UG/DOSIS (MICROGRAM PER DOSIS)
     Route: 065

REACTIONS (4)
  - Cerebrovascular accident [Unknown]
  - Skin cancer [Unknown]
  - Asthma [Unknown]
  - Macular fibrosis [Unknown]

NARRATIVE: CASE EVENT DATE: 20200928
